FAERS Safety Report 9656078 (Version 1)
Quarter: 2013Q4

REPORT INFORMATION
  Report Type: Spontaneous
  Country: BR (occurrence: BR)
  Receive Date: 20131030
  Receipt Date: 20131030
  Transmission Date: 20140711
  Serious: Yes (Other)
  Sender: FDA-Public Use
  Company Number: PHHY2013BR122140

PATIENT
  Age: 71 Year
  Sex: Female
  Weight: 55 kg

DRUGS (4)
  1. EXELON PATCH [Suspect]
     Indication: DEMENTIA ALZHEIMER^S TYPE
     Dosage: 4.6 MG, DAILY
     Route: 062
  2. EBIX [Concomitant]
     Indication: DEMENTIA ALZHEIMER^S TYPE
     Dosage: UNK UKN, UNK
  3. ZARGUS [Concomitant]
     Indication: IRRITABILITY
     Dosage: UNK UKN, UNK
  4. RAZAPINA [Concomitant]
     Indication: DEMENTIA ALZHEIMER^S TYPE
     Dosage: UNK UKN, UNK

REACTIONS (5)
  - Sedation [Not Recovered/Not Resolved]
  - Visual impairment [Unknown]
  - Somnambulism [Unknown]
  - Somnolence [Unknown]
  - Incorrect drug administration duration [Unknown]
